FAERS Safety Report 4523826-2 (Version None)
Quarter: 2004Q4

REPORT INFORMATION
  Report Type: 
  Country: None (occurrence: None)
  Receive Date: 20041210
  Receipt Date: 20041130
  Transmission Date: 20050328
  Serious: Yes (Hospitalization)
  Sender: FDA-Public Use
  Company Number: PHHO2004PH16939

PATIENT
  Age: 79 Year
  Sex: Female

DRUGS (1)
  1. CO-DIOVAN [Suspect]
     Dates: start: 20041025, end: 20041101

REACTIONS (2)
  - DIZZINESS [None]
  - TREMOR [None]
